FAERS Safety Report 6212694-9 (Version None)
Quarter: 2009Q2

REPORT INFORMATION
  Report Type: 
  Country: None (occurrence: None)
  Receive Date: 20090529
  Receipt Date: 20090515
  Transmission Date: 20091009
  Serious: No
  Sender: FDA-Public Use
  Company Number: 006468

PATIENT
  Age: 73 Year
  Sex: Male

DRUGS (2)
  1. PLETAL [Suspect]
     Indication: CEREBRAL INFARCTION
     Route: 048
  2. ASPIRIN [Suspect]
     Indication: CEREBRAL INFARCTION
     Route: 048

REACTIONS (2)
  - POST PROCEDURAL COMPLICATION [None]
  - SEROMA [None]
